FAERS Safety Report 4633539-4 (Version None)
Quarter: 2005Q2

REPORT INFORMATION
  Report Type: 
  Country: None (occurrence: None)
  Receive Date: 20050331
  Receipt Date: 20041215
  Transmission Date: 20051028
  Serious: Yes (Other)
  Sender: FDA-Public Use
  Company Number: 200416082BCC

PATIENT
  Age: 43 Year
  Sex: Male

DRUGS (1)
  1. ALEVE [Suspect]

REACTIONS (1)
  - GASTRIC ULCER [None]
